FAERS Safety Report 6715089-4 (Version None)
Quarter: 2010Q2

REPORT INFORMATION
  Report Type: 
  Country: None (occurrence: None)
  Receive Date: 20100507
  Receipt Date: 20100423
  Transmission Date: 20101027
  Serious: Yes (Other)
  Sender: FDA-Public Use
  Company Number: NL-MYLANLABS-2010S1007215

PATIENT
  Age: 60 Year
  Sex: Female
  Weight: 65 kg

DRUGS (1)
  1. NAPROXEN [Suspect]
     Indication: PROCEDURAL PAIN
     Dates: start: 20100303, end: 20100312

REACTIONS (1)
  - MIGRAINE [None]
